FAERS Safety Report 4415656-7 (Version None)
Quarter: 2004Q2

REPORT INFORMATION
  Report Type: 
  Country: None (occurrence: None)
  Receive Date: 20040621
  Receipt Date: 20031209
  Transmission Date: 20050107
  Serious: Yes (Death)
  Sender: FDA-Public Use
  Company Number: USA-2003-0011888

PATIENT
  Age: 45 Year
  Sex: Female
  Weight: 50.3 kg

DRUGS (4)
  1. OXYCODONE HCL [Suspect]
  2. BUTALBITAL [Suspect]
  3. AMITRIPTYLINE HCL [Suspect]
  4. ACETAMINOPHEN [Suspect]

REACTIONS (2)
  - INTENTIONAL OVERDOSE [None]
  - MULTIPLE DRUG OVERDOSE [None]
